FAERS Safety Report 6110716-7 (Version None)
Quarter: 2009Q1

REPORT INFORMATION
  Report Type: 
  Country: None (occurrence: None)
  Receive Date: 20090309
  Receipt Date: 20090302
  Transmission Date: 20090719
  Serious: Yes (Other)
  Sender: FDA-Public Use
  Company Number: 1000000357

PATIENT
  Age: 65 Year
  Sex: Female

DRUGS (11)
  1. LEXAPRO [Suspect]
     Indication: ANXIETY
     Dosage: 10 MG, (10 MG, 1 IN 1 D), ORAL
     Route: 048
     Dates: start: 20060101, end: 20080401
  2. LEXAPRO [Suspect]
     Indication: SOMATISATION DISORDER
     Dosage: 10 MG, (10 MG, 1 IN 1 D), ORAL
     Route: 048
     Dates: start: 20060101, end: 20080401
  3. LEXAPRO [Suspect]
     Indication: ANXIETY
     Dosage: 10 MG (10 MG, 1 IN 1 D), ORAL
     Route: 048
     Dates: start: 20080501, end: 20080724
  4. LEXAPRO [Suspect]
     Indication: SOMATISATION DISORDER
     Dosage: 10 MG (10 MG, 1 IN 1 D), ORAL
     Route: 048
     Dates: start: 20080501, end: 20080724
  5. LEXAPRO [Suspect]
     Indication: ANXIETY
     Dosage: 10 MG (10 MG 1 IN 1 D), ORAL
     Route: 048
     Dates: start: 20080101, end: 20080901
  6. LEXAPRO [Suspect]
     Indication: SOMATISATION DISORDER
     Dosage: 10 MG (10 MG 1 IN 1 D), ORAL
     Route: 048
     Dates: start: 20080101, end: 20080901
  7. LEXAPRO [Suspect]
     Indication: ANXIETY
     Dosage: 10 MG (10 MG, 1 IN 1 D), ORAL; 5 MG (5MG, 1 IN 1 D), ORAL
     Route: 048
     Dates: start: 20080101, end: 20080101
  8. LEXAPRO [Suspect]
     Indication: SOMATISATION DISORDER
     Dosage: 10 MG (10 MG, 1 IN 1 D), ORAL; 5 MG (5MG, 1 IN 1 D), ORAL
     Route: 048
     Dates: start: 20080101, end: 20080101
  9. LEXAPRO [Suspect]
     Indication: ANXIETY
     Dosage: 10 MG (10 MG, 1 IN 1 D), ORAL; 5 MG (5MG, 1 IN 1 D), ORAL
     Route: 048
     Dates: start: 20080101, end: 20080101
  10. LEXAPRO [Suspect]
     Indication: SOMATISATION DISORDER
     Dosage: 10 MG (10 MG, 1 IN 1 D), ORAL; 5 MG (5MG, 1 IN 1 D), ORAL
     Route: 048
     Dates: start: 20080101, end: 20080101
  11. METOPROLOL TARTRATE [Concomitant]

REACTIONS (18)
  - AGITATION [None]
  - ANXIETY [None]
  - BLOOD PRESSURE INCREASED [None]
  - BURNING SENSATION [None]
  - CARDIAC MURMUR [None]
  - CONDITION AGGRAVATED [None]
  - DIZZINESS [None]
  - DRUG WITHDRAWAL SYNDROME [None]
  - FAECAL INCONTINENCE [None]
  - HOT FLUSH [None]
  - HYPERHIDROSIS [None]
  - MUSCULAR WEAKNESS [None]
  - MYALGIA [None]
  - PALPITATIONS [None]
  - SUPRAVENTRICULAR TACHYCARDIA [None]
  - TINNITUS [None]
  - TREMOR [None]
  - URINARY INCONTINENCE [None]
